FAERS Safety Report 7620565-6 (Version None)
Quarter: 2011Q3

REPORT INFORMATION
  Report Type: 
  Country: None (occurrence: None)
  Receive Date: 20110719
  Receipt Date: 20110712
  Transmission Date: 20111222
  Serious: Yes (Death, Life-Threatening, Hospitalization, Disabling)
  Sender: FDA-Public Use
  Company Number: GB-ROCHE-769992

PATIENT
  Age: 62 Year
  Sex: Female
  Weight: 61 kg

DRUGS (9)
  1. AMLODIPINE [Concomitant]
     Route: 048
  2. CITALOPRAM HYDROBROMIDE [Concomitant]
  3. TRAMADOL HCL [Concomitant]
  4. ACTEMRA [Suspect]
     Indication: RHEUMATOID ARTHRITIS
     Dosage: DRUG WITHDRAWN.
     Route: 042
     Dates: start: 20101125, end: 20110203
  5. LISINOPRIL [Concomitant]
     Route: 048
  6. OMEPRAZOLE [Concomitant]
     Route: 048
  7. FERROUS SULFATE TAB [Concomitant]
  8. SIMVASTATIN [Concomitant]
  9. NAPROXEN [Concomitant]
     Route: 048

REACTIONS (2)
  - PANCREATITIS NECROTISING [None]
  - PANCREATITIS ACUTE [None]
